FAERS Safety Report 16312775 (Version 1)
Quarter: 2019Q2

REPORT INFORMATION
  Report Type: Spontaneous
  Country: US (occurrence: US)
  Receive Date: 20190408
  Receipt Date: 20190408
  Transmission Date: 20190711
  Serious: Yes (Hospitalization, Disabling)
  Sender: FDA-Public Use
  Company Number: None

PATIENT
  Age: 79 Year
  Sex: Female
  Weight: 91.17 kg

DRUGS (8)
  1. METOPROLOL TARTRATE. [Concomitant]
     Active Substance: METOPROLOL TARTRATE
  2. MELATONIN [Concomitant]
     Active Substance: MELATONIN
  3. ELIQUIS [Concomitant]
     Active Substance: APIXABAN
  4. GABAPENTIN. [Concomitant]
     Active Substance: GABAPENTIN
  5. VITAMIN D [Concomitant]
     Active Substance: VITAMIN D NOS
  6. METHYPREDNISOLONE TABLETS, USP 4MG [Suspect]
     Active Substance: METHYLPREDNISOLONE
     Indication: PRODUCT USED FOR UNKNOWN INDICATION
     Dosage: ?          QUANTITY:21 DF DOSAGE FORM;?
     Route: 048
     Dates: start: 20180328, end: 20180331
  7. CARBIDOPA-LEVODOPA [Concomitant]
     Active Substance: CARBIDOPA\LEVODOPA
  8. OXYBUTYNIN XL [Concomitant]
     Active Substance: OXYBUTYNIN CHLORIDE

REACTIONS (7)
  - Fall [None]
  - Paraplegia [None]
  - Anal incontinence [None]
  - Musculoskeletal stiffness [None]
  - Movement disorder [None]
  - Urinary incontinence [None]
  - Spinal operation [None]

NARRATIVE: CASE EVENT DATE: 20180329
